FAERS Safety Report 8592923-7 (Version None)
Quarter: 2012Q3

REPORT INFORMATION
  Report Type: 
  Country: None (occurrence: None)
  Receive Date: 20120814
  Receipt Date: 20120612
  Transmission Date: 20120928
  Serious: No
  Sender: FDA-Public Use
  Company Number: US-009507513-1208USA002558

PATIENT

DRUGS (2)
  1. MIRALAX [Suspect]
     Dosage: 17 UNK, UNK
     Route: 048
     Dates: start: 20120612
  2. MIRALAX [Suspect]
     Indication: PRODUCT USED FOR UNKNOWN INDICATION
     Dosage: 17 G, ONCE
     Route: 048
     Dates: start: 20120611

REACTIONS (2)
  - OVERDOSE [None]
  - DRUG INEFFECTIVE [None]
